FAERS Safety Report 4399058-8 (Version None)
Quarter: 2004Q3

REPORT INFORMATION
  Report Type: 
  Country: None (occurrence: None)
  Receive Date: 20040712
  Receipt Date: 20040622
  Transmission Date: 20050211
  Serious: Yes (Other)
  Sender: FDA-Public Use
  Company Number: 2004RL000073

PATIENT
  Age: 75 Year
  Sex: Male
  Weight: 86.1834 kg

DRUGS (4)
  1. RYTHMOL [Suspect]
     Indication: HEART RATE IRREGULAR
     Dosage: 225 MG; TID; PO
     Route: 048
     Dates: start: 19930101, end: 20040610
  2. LOPRESSOR [Suspect]
     Indication: HEART RATE IRREGULAR
     Dosage: 50 MG; BID; PO  : 25 MG; BID PO
     Route: 048
     Dates: start: 20040611, end: 20040612
  3. LOPRESSOR [Suspect]
     Indication: HEART RATE IRREGULAR
     Dosage: 50 MG; BID; PO  : 25 MG; BID PO
     Route: 048
     Dates: start: 20040612, end: 20040624
  4. ASPIRIN [Concomitant]

REACTIONS (7)
  - BRADYCARDIA [None]
  - DRUG INEFFECTIVE [None]
  - HEART RATE IRREGULAR [None]
  - HYPOTENSION [None]
  - OESOPHAGEAL DISORDER [None]
  - SICK SINUS SYNDROME [None]
  - VENTRICULAR EXTRASYSTOLES [None]
